FAERS Safety Report 14011702 (Version 3)
Quarter: 2018Q1

REPORT INFORMATION
  Report Type: Report from Study
  Country: JP (occurrence: JP)
  Receive Date: 20170926
  Receipt Date: 20180109
  Transmission Date: 20180508
  Serious: Yes (Hospitalization)
  Sender: FDA-Public Use
  Company Number: JP-ACTELION-A-CH2017-159624

PATIENT
  Age: 77 Year
  Sex: Female

DRUGS (30)
  1. AIMIX [Concomitant]
     Active Substance: AMLODIPINE BESYLATE\IRBESARTAN
  2. CRESTOR [Concomitant]
     Active Substance: ROSUVASTATIN CALCIUM
  3. CINAL [Concomitant]
     Active Substance: ASCORBIC ACID\CALCIUM PANTOTHENATE
  4. TAKECAB [Concomitant]
     Active Substance: VONOPRAZAN FUMURATE
  5. URSO [Concomitant]
     Active Substance: URSODIOL
  6. LASIX [Concomitant]
     Active Substance: FUROSEMIDE
  7. KAKODIN [Concomitant]
  8. OPSUMIT [Suspect]
     Active Substance: MACITENTAN
     Indication: PULMONARY ARTERIAL HYPERTENSION
     Dosage: 10 MG, QD
     Route: 048
     Dates: start: 20160613, end: 20170328
  9. REVATIO [Concomitant]
     Active Substance: SILDENAFIL CITRATE
  10. PREDNISOLONE. [Concomitant]
     Active Substance: PREDNISOLONE
  11. DOBUTREX [Concomitant]
     Active Substance: DOBUTAMINE HYDROCHLORIDE
  12. FERROMIA [Concomitant]
     Active Substance: SODIUM FERROUS CITRATE
  13. SILECE [Concomitant]
     Active Substance: FLUNITRAZEPAM
  14. SAMSCA [Concomitant]
     Active Substance: TOLVAPTAN
  15. JANUVIA [Concomitant]
     Active Substance: SITAGLIPTIN PHOSPHATE
  16. VASOLAN [Concomitant]
     Active Substance: VERAPAMIL HYDROCHLORIDE
  17. OPSUMIT [Suspect]
     Active Substance: MACITENTAN
     Dosage: 10 MG, QD
     Route: 048
     Dates: start: 20170401
  18. SALAGEN [Concomitant]
     Active Substance: PILOCARPINE HYDROCHLORIDE
  19. MAINTATE [Concomitant]
     Active Substance: BISOPROLOL FUMARATE
  20. HYPEN [Concomitant]
     Active Substance: ETODOLAC
  21. OMARIGLIPTIN [Concomitant]
     Active Substance: OMARIGLIPTIN
  22. HEPARIN SODIUM. [Concomitant]
     Active Substance: HEPARIN SODIUM
  23. MYSLEE [Concomitant]
     Active Substance: ZOLPIDEM TARTRATE
  24. MILRILA [Concomitant]
     Active Substance: MILRINONE
  25. NORADRENALINE [Concomitant]
     Active Substance: NOREPINEPHRINE
  26. HEPARIN CALCIUM [Concomitant]
     Active Substance: HEPARIN CALCIUM
  27. WARFARIN [Concomitant]
     Active Substance: WARFARIN
  28. ALDACTONE [Concomitant]
     Active Substance: SPIRONOLACTONE
  29. LUNESTA [Concomitant]
     Active Substance: ESZOPICLONE
  30. ONOACT [Concomitant]
     Active Substance: LANDIOLOL HYDROCHLORIDE

REACTIONS (6)
  - Pneumonia bacterial [Recovering/Resolving]
  - Pyrexia [Recovering/Resolving]
  - Malaise [Recovering/Resolving]
  - Aortic valve stenosis [Recovering/Resolving]
  - Iron deficiency anaemia [Recovered/Resolved]
  - Aortic valve replacement [Recovering/Resolving]

NARRATIVE: CASE EVENT DATE: 20170130
